FAERS Safety Report 4579855-6 (Version None)
Quarter: 2005Q1

REPORT INFORMATION
  Report Type: 
  Country: None (occurrence: None)
  Receive Date: 20050210
  Receipt Date: 20050126
  Transmission Date: 20050727
  Serious: Yes (Death)
  Sender: FDA-Public Use
  Company Number: 2004AL000691

PATIENT
  Age: 41 Year
  Sex: Female

DRUGS (3)
  1. TRAZODONE HCL [Suspect]
     Dosage: PO
     Route: 048
  2. LORAZEPAM [Suspect]
     Dosage: PO
     Route: 048
  3. AMITRIPTYLINE HCL [Suspect]
     Dosage: PO
     Route: 048

REACTIONS (7)
  - ACIDOSIS [None]
  - CARDIAC ARREST [None]
  - COMA [None]
  - COMPLETED SUICIDE [None]
  - INTENTIONAL MISUSE [None]
  - LIVER FUNCTION TEST ABNORMAL [None]
  - RESPIRATORY ARREST [None]
